FAERS Safety Report 7222863-7 (Version None)
Quarter: 2011Q1

REPORT INFORMATION
  Report Type: 
  Country: None (occurrence: None)
  Receive Date: 20110112
  Receipt Date: 20101221
  Transmission Date: 20110831
  Serious: No
  Sender: FDA-Public Use
  Company Number: US-BAYER-2010-008970

PATIENT
  Sex: Female

DRUGS (2)
  1. YAZ [Suspect]
  2. BEYAZ [Suspect]
     Dosage: UNK

REACTIONS (2)
  - PREMENSTRUAL SYNDROME [None]
  - HEADACHE [None]
